FAERS Safety Report 5361962-1 (Version None)
Quarter: 2007Q2

REPORT INFORMATION
  Report Type: 
  Country: None (occurrence: None)
  Receive Date: 20070618
  Receipt Date: 20070618
  Transmission Date: 20071010
  Serious: No
  Sender: FDA-Public Use
  Company Number: None

PATIENT

DRUGS (3)
  1. SINEQUAN [Suspect]
     Dosage: CAPSULE
  2. SINEQUAN [Suspect]
     Dosage: CAPSULE
  3. PHARMACY RX [Suspect]

REACTIONS (5)
  - DRUG DISPENSING ERROR [None]
  - FATIGUE [None]
  - INCORRECT DOSE ADMINISTERED [None]
  - MEDICATION ERROR [None]
  - SOMNOLENCE [None]
